FAERS Safety Report 6849248-7 (Version None)
Quarter: 2010Q3

REPORT INFORMATION
  Report Type: 
  Country: None (occurrence: None)
  Receive Date: 20100716
  Receipt Date: 20071031
  Transmission Date: 20110219
  Serious: Yes (Other)
  Sender: FDA-Public Use
  Company Number: US-PFIZER INC-2007081485

PATIENT
  Sex: Female

DRUGS (10)
  1. CHANTIX [Suspect]
     Indication: SMOKING CESSATION THERAPY
     Route: 048
     Dates: start: 20070830, end: 20070912
  2. ANTIBIOTICS [Suspect]
  3. ACETYLSALICYLIC ACID [Concomitant]
  4. VYTORIN [Concomitant]
  5. NEXIUM [Concomitant]
  6. HYDROCHLOROTHIAZIDE [Concomitant]
  7. PROZAC [Concomitant]
  8. VITAMINS [Concomitant]
  9. COZAAR [Concomitant]
  10. PROVENTIL GENTLEHALER [Concomitant]
     Route: 055

REACTIONS (4)
  - ABDOMINAL PAIN UPPER [None]
  - DIARRHOEA [None]
  - NAUSEA [None]
  - VOMITING [None]
